FAERS Safety Report 9636392 (Version 2)
Quarter: 2014Q1

REPORT INFORMATION
  Report Type: Report from Study
  Country: BR (occurrence: BR)
  Receive Date: 20131021
  Receipt Date: 20140123
  Transmission Date: 20141002
  Serious: Yes (Other)
  Sender: FDA-Public Use
  Company Number: BR-US-EMD SERONO, INC.-7243432

PATIENT
  Age: 42 Year
  Sex: Female

DRUGS (3)
  1. REBIF [Suspect]
     Indication: RELAPSING-REMITTING MULTIPLE SCLEROSIS
     Route: 058
     Dates: start: 20090401
  2. LOSARTAN [Concomitant]
     Indication: HYPERTENSION
  3. FLUOXETINE [Concomitant]
     Indication: DEPRESSION

REACTIONS (1)
  - Pneumonia [Recovering/Resolving]
